FAERS Safety Report 10038094 (Version 1)
Quarter: 2014Q1

REPORT INFORMATION
  Report Type: Spontaneous
  Country: US (occurrence: None)
  Receive Date: 20140306
  Receipt Date: 20140306
  Transmission Date: 20141002
  Serious: Yes (Other)
  Sender: FDA-Public Use
  Company Number: 163-21880-13104948

PATIENT
  Age: 87 Year
  Sex: Female

DRUGS (15)
  1. REVLIMID [Suspect]
     Indication: PLASMA CELL MYELOMA
     Route: 048
     Dates: start: 20121228, end: 201301
  2. CALTRATE WITH VITAMIN D (LEKOVIT CA) (TABLETS) [Concomitant]
  3. CARVEDILOL (CARVEDILOL) (UNKNOWN) [Concomitant]
  4. COZAAR (LOSARTAN POTASSIUM) (25 MILLIGRAM, TABLETS) [Concomitant]
  5. DEXAMETHASONE (DEXAMETHASONE) (TABLETS) [Concomitant]
  6. DIPHENHYDRAMINE HCL (DIPHENHYDRAMINE HYDROCHLORIDE) (TABLETS) [Concomitant]
  7. PSYLLIUM (PSYLLIUM) (UNKNOWN) [Concomitant]
  8. PRILOSEC (OMEPRAZOLE) (20 MILLIGRAM, CAPSULES) [Concomitant]
  9. GLUCOSAMINE-CHONDROITIN HRB (GLUCOSAMINE W/CHONDROITIN COMPLEX) (TABLETS) [Concomitant]
  10. LORAZEPAM (LORAZEPAM) (TABLETS) [Concomitant]
  11. MULTIVITAMINS-MINERALS-LUTEIN (MULTIVITAMINS + MINERALS PLUS LUTEIN) (TABLETS) [Concomitant]
  12. SIMVASTATIN (SIMVASTATIN) (TABLETS) [Concomitant]
  13. TRAMADOL (TRAMADOL) (TABLETS) [Concomitant]
  14. ACYCLOVIR (ACICLOVIR) (CAPSULES) [Concomitant]
  15. ASPIRIN (ACETYLSALICYLIC ACID) (TABLETS) [Concomitant]

REACTIONS (4)
  - Hypersensitivity [None]
  - Rash [None]
  - Pruritus [None]
  - Eyelid oedema [None]
